FAERS Safety Report 9299402 (Version 2)
Quarter: 2013Q4

REPORT INFORMATION
  Report Type: Spontaneous
  Country: US (occurrence: US)
  Receive Date: 20130520
  Receipt Date: 20131023
  Transmission Date: 20140711
  Serious: Yes (Hospitalization)
  Sender: FDA-Public Use
  Company Number: US-B.I. PHARMACEUTICALS,INC./RIDGEFIELD-2013-BI-13946BP

PATIENT
  Age: 71 Year
  Sex: Female
  Weight: 76.66 kg

DRUGS (18)
  1. PRADAXA [Suspect]
     Indication: ATRIAL FIBRILLATION
     Dosage: 300 MG
     Route: 048
     Dates: start: 20110706, end: 20120518
  2. OXYGEN [Concomitant]
     Indication: CHRONIC OBSTRUCTIVE PULMONARY DISEASE
  3. AMIODARONE [Concomitant]
     Indication: ATRIAL FIBRILLATION
     Dosage: 200 MG
     Route: 048
  4. TRAZODONE [Concomitant]
     Dosage: 50 MG
     Route: 048
  5. BUSPAR [Concomitant]
     Dosage: 100 NG
     Route: 048
  6. VITAMIN B12 [Concomitant]
     Dosage: 1000 MCG
     Route: 048
  7. GABAPENTIN [Concomitant]
     Dosage: 1800 MG
     Route: 048
  8. MIRAPEX [Concomitant]
     Dosage: 0.25 MG
     Route: 048
  9. METFORMIN [Concomitant]
     Dosage: 500 MG
     Route: 048
  10. LIPITOR [Concomitant]
     Dosage: 40 MG
     Route: 048
  11. COMBIVENT [Concomitant]
  12. MIRALAX [Concomitant]
     Indication: CONSTIPATION
  13. POTASSIUM CHLORIDE [Concomitant]
     Dosage: 10 MEQ
     Route: 048
  14. IMDUR [Concomitant]
     Dosage: 30 MG
     Route: 048
  15. LASIX [Concomitant]
     Dosage: 40 MG
     Route: 048
  16. LORTAB [Concomitant]
     Route: 048
  17. COLACE [Concomitant]
     Dosage: 100 MG
     Route: 048
  18. ADVAIR DISKUS [Concomitant]

REACTIONS (2)
  - Gastrointestinal haemorrhage [Recovered/Resolved]
  - Haemorrhagic anaemia [Unknown]
